FAERS Safety Report 7077272-0 (Version None)
Quarter: 2010Q4

REPORT INFORMATION
  Report Type: 
  Country: None (occurrence: None)
  Receive Date: 20101101
  Receipt Date: 20101021
  Transmission Date: 20110411
  Serious: Yes (Life-Threatening, Other)
  Sender: FDA-Public Use
  Company Number: US-BAXTER-2010BH024846

PATIENT
  Age: 74 Year
  Sex: Male

DRUGS (24)
  1. ATIVAN [Suspect]
     Indication: AGITATION POSTOPERATIVE
     Route: 042
     Dates: start: 20100604, end: 20100604
  2. LISINOPRIL [Concomitant]
     Indication: PRODUCT USED FOR UNKNOWN INDICATION
     Route: 048
  3. ASPIRIN [Concomitant]
     Indication: PRODUCT USED FOR UNKNOWN INDICATION
     Route: 048
     Dates: start: 20100601
  4. ATENOLOL [Concomitant]
     Indication: PRODUCT USED FOR UNKNOWN INDICATION
     Route: 047
  5. SYMBICORT [Concomitant]
     Indication: PRODUCT USED FOR UNKNOWN INDICATION
     Route: 055
  6. ALBUTEROL [Concomitant]
     Indication: PRODUCT USED FOR UNKNOWN INDICATION
     Route: 055
  7. FENTANYL CITRATE [Concomitant]
     Indication: PREMEDICATION
     Route: 055
     Dates: start: 20100604, end: 20100604
  8. VERSED [Concomitant]
     Indication: PREMEDICATION
     Route: 065
     Dates: start: 20100604, end: 20100604
  9. FAMOTIDINE [Concomitant]
     Indication: PREMEDICATION
     Route: 065
     Dates: start: 20100604, end: 20100604
  10. FOSPHENYTOIN [Concomitant]
     Indication: PREMEDICATION
     Route: 065
     Dates: start: 20100604, end: 20100604
  11. VENTOLIN [Concomitant]
     Indication: PREMEDICATION
     Route: 055
     Dates: start: 20100604, end: 20100604
  12. ANTIBIOTICS [Concomitant]
     Indication: PREMEDICATION
     Route: 065
     Dates: start: 20100604, end: 20100604
  13. LACTATED RINGER'S [Concomitant]
     Indication: PREMEDICATION
     Route: 065
     Dates: start: 20100604, end: 20100604
  14. SEVOFLURANE [Concomitant]
     Indication: ANAESTHESIA
     Route: 065
     Dates: start: 20100604, end: 20100604
  15. ROCURONIUM BROMIDE [Concomitant]
     Indication: ANAESTHESIA
     Route: 065
     Dates: start: 20100604, end: 20100604
  16. PROPOFOL [Concomitant]
     Indication: ANAESTHESIA
     Route: 065
     Dates: start: 20100604, end: 20100604
  17. LIDOCAINE [Concomitant]
     Indication: ANAESTHESIA
     Route: 065
     Dates: start: 20100604, end: 20100604
  18. ETOMIDATE [Concomitant]
     Indication: ANAESTHESIA
     Route: 065
     Dates: start: 20100604, end: 20100604
  19. NEOSTIGMINE [Concomitant]
     Indication: ANAESTHESIA REVERSAL
     Route: 065
     Dates: start: 20100604, end: 20100604
  20. GLYCOPYRROLATE [Concomitant]
     Indication: ANAESTHESIA REVERSAL
     Route: 065
     Dates: start: 20100604, end: 20100604
  21. DECADRON                                /NET/ [Concomitant]
     Indication: ANAESTHESIA REVERSAL
     Route: 065
     Dates: start: 20100604, end: 20100604
  22. ZOFRAN [Concomitant]
     Indication: ANAESTHESIA REVERSAL
     Route: 065
     Dates: start: 20100604, end: 20100604
  23. DILAUDID [Concomitant]
     Indication: PRODUCT USED FOR UNKNOWN INDICATION
     Route: 065
     Dates: start: 20100604, end: 20100604
  24. NICARDIPINE HYDROCHLORIDE [Concomitant]
     Indication: PRODUCT USED FOR UNKNOWN INDICATION
     Route: 041
     Dates: start: 20100604, end: 20100604

REACTIONS (4)
  - ANAPHYLACTIC REACTION [None]
  - CARDIO-RESPIRATORY ARREST [None]
  - RASH [None]
  - UNRESPONSIVE TO STIMULI [None]
